FAERS Safety Report 17079851 (Version 2)
Quarter: 2019Q4

REPORT INFORMATION
  Report Type: Report from Study
  Country: US (occurrence: US)
  Receive Date: 20191127
  Receipt Date: 20191211
  Transmission Date: 20200122
  Serious: Yes (Death, Other)
  Sender: FDA-Public Use
  Company Number: US-ROCHE-2267319

PATIENT
  Age: 81 Year
  Sex: Male

DRUGS (2)
  1. ATEZOLIZUMAB. [Suspect]
     Active Substance: ATEZOLIZUMAB
     Indication: NEOPLASM
     Route: 042
     Dates: start: 20180723
  2. COBIMETINIB. [Suspect]
     Active Substance: COBIMETINIB
     Indication: NEOPLASM
     Dosage: FOR 21 DAYS
     Route: 048
     Dates: start: 20180723

REACTIONS (2)
  - Pneumonia [Recovered/Resolved]
  - Neoplasm [Fatal]

NARRATIVE: CASE EVENT DATE: 20180804
